FAERS Safety Report 17029399 (Version 1)
Quarter: 2019Q4

REPORT INFORMATION
  Report Type: Spontaneous
  Country: GB (occurrence: GB)
  Receive Date: 20191114
  Receipt Date: 20191114
  Transmission Date: 20200122
  Serious: Yes (Other)
  Sender: FDA-Public Use
  Company Number: GB-TEVA-2019-GB-1137343

PATIENT
  Age: 45 Year
  Sex: Male
  Weight: 95 kg

DRUGS (1)
  1. BISOPROLOL FUMARATE. [Suspect]
     Active Substance: BISOPROLOL FUMARATE
     Indication: PALPITATIONS
     Dosage: 2.5 MILLIGRAM
     Route: 048
     Dates: start: 20171201

REACTIONS (3)
  - Dyspnoea [Unknown]
  - Fluid retention [Unknown]
  - Hyperhidrosis [Unknown]
